FAERS Safety Report 9284492 (Version 3)
Quarter: 2013Q3

REPORT INFORMATION
  Report Type: Report from Study
  Country: GB (occurrence: GB)
  Receive Date: 20130510
  Receipt Date: 20130927
  Transmission Date: 20140515
  Serious: Yes (Other)
  Sender: FDA-Public Use
  Company Number: GB-ELI_LILLY_AND_COMPANY-GB201304003684

PATIENT
  Sex: Male
  Weight: 38.8 kg

DRUGS (5)
  1. SOMATROPIN [Suspect]
     Indication: HYPOPITUITARISM
     Dosage: 1 UNK, UNK
     Route: 058
     Dates: start: 201210, end: 20130129
  2. SOMATROPIN [Suspect]
     Dosage: UNK
     Dates: start: 20130410
  3. DESMOPRESSIN ACETATE [Concomitant]
  4. HYDROCORTISONE [Concomitant]
  5. THYROXINE [Concomitant]

REACTIONS (2)
  - Craniopharyngioma [Recovered/Resolved]
  - Injection site bruising [Unknown]
